FAERS Safety Report 9139851 (Version 1)
Quarter: 2013Q1

REPORT INFORMATION
  Report Type: Spontaneous
  Country: US (occurrence: US)
  Receive Date: 20130305
  Receipt Date: 20130305
  Transmission Date: 20140127
  Serious: Yes (Other)
  Sender: FDA-Public Use
  Company Number: US-PFIZER INC-2013074812

PATIENT
  Sex: Male

DRUGS (1)
  1. LYRICA [Suspect]
     Indication: PAIN
     Dosage: 75 MG, 1X/DAY(DAILY)
     Route: 048

REACTIONS (4)
  - Retinal disorder [Unknown]
  - Vision blurred [Unknown]
  - Drug hypersensitivity [Unknown]
  - Intentional drug misuse [Unknown]
